FAERS Safety Report 12661357 (Version 2)
Quarter: 2016Q3

REPORT INFORMATION
  Report Type: Spontaneous
  Country: US (occurrence: US)
  Receive Date: 20160817
  Receipt Date: 20160901
  Transmission Date: 20161109
  Serious: No
  Sender: FDA-Public Use
  Company Number: US-RELYPSA-RLY2016000923

PATIENT
  Age: 83 Year
  Sex: Male

DRUGS (8)
  1. VELTASSA [Suspect]
     Active Substance: PATIROMER
     Indication: HYPERKALAEMIA
     Dosage: 8.4 G, QD
     Route: 048
     Dates: start: 20160520, end: 20160601
  2. VELTASSA [Suspect]
     Active Substance: PATIROMER
     Dosage: 8.4 G, TWO PACKETS QD
     Route: 048
     Dates: start: 20160602
  3. ASPIRIN                            /00002701/ [Concomitant]
     Active Substance: ASPIRIN
  4. ALBUTEROL                          /00139501/ [Concomitant]
     Active Substance: ALBUTEROL
  5. OXYGEN. [Concomitant]
     Active Substance: OXYGEN
  6. AMIODARONE [Concomitant]
     Active Substance: AMIODARONE
  7. VITAMINS                           /00067501/ [Concomitant]
     Active Substance: VITAMINS
  8. KAYEXALATE [Concomitant]
     Active Substance: SODIUM POLYSTYRENE SULFONATE
     Indication: HYPERKALAEMIA
     Dosage: UNK
     Dates: end: 201605

REACTIONS (4)
  - Constipation [Unknown]
  - Blood potassium increased [Unknown]
  - Skin exfoliation [Unknown]
  - Dyspnoea [None]

NARRATIVE: CASE EVENT DATE: 201605
